FAERS Safety Report 8823800 (Version 4)
Quarter: 2013Q1

REPORT INFORMATION
  Report Type: Report from Study
  Country: FR (occurrence: FR)
  Receive Date: 20121003
  Receipt Date: 20130321
  Transmission Date: 20140127
  Serious: Yes (Death)
  Sender: FDA-Public Use
  Company Number: FR-PFIZER INC-2012240081

PATIENT
  Age: 79 Year
  Sex: Female
  Weight: 61 kg

DRUGS (5)
  1. ATGAM [Suspect]
     Indication: BONE MARROW FAILURE
     Dosage: 2440 MG, DAILY
     Route: 042
     Dates: start: 20120920
  2. PERFALGAN [Concomitant]
     Indication: PREMEDICATION
     Dosage: 1 G, 1X/DAY
     Route: 042
     Dates: start: 20120920
  3. METHYLPREDNISOLONE [Concomitant]
     Indication: PREMEDICATION
     Dosage: 120 MG, 1X/DAY
     Route: 042
     Dates: start: 20120920
  4. POLARAMINE [Concomitant]
     Indication: PREMEDICATION
     Dosage: 1 DF, 1X/DAY
     Route: 042
     Dates: start: 20120920
  5. CYCLOSPORINE [Concomitant]
     Indication: BONE MARROW FAILURE
     Dosage: 10 MG/KG, UNK

REACTIONS (2)
  - Septic shock [Fatal]
  - Multi-organ failure [Fatal]
